FAERS Safety Report 4999109-3 (Version None)
Quarter: 2006Q2

REPORT INFORMATION
  Report Type: 
  Country: None (occurrence: None)
  Receive Date: 20060509
  Receipt Date: 20060418
  Transmission Date: 20061013
  Serious: Yes (Hospitalization)
  Sender: FDA-Public Use
  Company Number: US200512002302

PATIENT
  Age: 82 Year
  Sex: Female

DRUGS (11)
  1. TERIPARATIDE (TERIPARATIDE) PEN, DISPOSABLE [Suspect]
     Indication: OSTEOPOROSIS
     Dosage: 20 UG, SUBCUTANEOUS
     Route: 058
     Dates: start: 20050317
  2. FORTEO [Concomitant]
  3. ASA (ASPIRIN (ACETYLSALICYLIC ACID) [Concomitant]
  4. LOTREL [Concomitant]
  5. METOPROLOL SUCCINATE [Concomitant]
  6. ZETIA [Concomitant]
  7. LEXAPRO [Concomitant]
  8. PLAVIX [Concomitant]
  9. ACETAMINOPHEN [Concomitant]
  10. PERCOGESIC (PARACETAMOL, PHENYLTOLOXAMINE CITRATE) [Concomitant]
  11. ORPHENADRINE CITRATE [Concomitant]

REACTIONS (5)
  - ATRIAL FIBRILLATION [None]
  - CARDIAC FAILURE CONGESTIVE [None]
  - CHRONIC OBSTRUCTIVE PULMONARY DISEASE [None]
  - HEART RATE IRREGULAR [None]
  - PNEUMONIA [None]
